FAERS Safety Report 9647648 (Version 1)
Quarter: 2013Q4

REPORT INFORMATION
  Report Type: Spontaneous
  Country: NO (occurrence: NO)
  Receive Date: 20131028
  Receipt Date: 20131028
  Transmission Date: 20140711
  Serious: Yes (Hospitalization)
  Sender: FDA-Public Use
  Company Number: NO-ACCORD-020074

PATIENT
  Age: 22 Year
  Sex: Female

DRUGS (5)
  1. NALTREXONE [Suspect]
     Indication: SLEEP DISORDER
     Route: 048
     Dates: start: 201305, end: 20130910
  2. AMOXICILLIN [Suspect]
     Indication: BORRELIA INFECTION
     Dosage: 1 G+ 0.5 G+ 1G
     Route: 048
     Dates: start: 201306, end: 20130910
  3. FASIGYN [Suspect]
     Indication: BORRELIA INFECTION
     Route: 048
     Dates: start: 201306, end: 20130910
  4. MERCILON [Concomitant]
     Indication: CONTRACEPTION
     Route: 048
     Dates: start: 201306, end: 20130910
  5. THYROID [Concomitant]
     Indication: HYPOTHYROIDISM
     Route: 048
     Dates: start: 201301, end: 20130910

REACTIONS (2)
  - Hepatitis cholestatic [Recovering/Resolving]
  - Off label use [Unknown]
